FAERS Safety Report 7472910 (Version 5)
Quarter: 2014Q1

REPORT INFORMATION
  Report Type: Spontaneous
  Country: US (occurrence: US)
  Receive Date: 20100714
  Receipt Date: 20140115
  Transmission Date: 20141002
  Serious: Yes (Other)
  Sender: FDA-Public Use
  Company Number: US-BAYER-201027475NA

PATIENT
  Age: 30 Year
  Sex: Female
  Weight: 73 kg

DRUGS (16)
  1. YASMIN [Suspect]
     Indication: PRODUCT USED FOR UNKNOWN INDICATION
     Dosage: UNK
     Dates: start: 2006
  2. YASMIN [Suspect]
     Indication: PRODUCT USED FOR UNKNOWN INDICATION
     Dosage: NOTES FROM 12-NOV-2007 INDICATED THAT YASMIN WAS DISCONTINUED ON AN UNSPECIFIED DATE
     Route: 048
     Dates: start: 2005, end: 20080615
  3. OCELLA [Suspect]
     Indication: PRODUCT USED FOR UNKNOWN INDICATION
     Dosage: UNK
     Dates: start: 2006
  4. DIOVAN [Concomitant]
  5. NAPROSYN [Concomitant]
  6. ADVIL [Concomitant]
     Indication: HEADACHE
     Dates: start: 1989
  7. MOTRIN [Concomitant]
     Indication: MYALGIA
     Dates: start: 1989
  8. EXCEDRIN MIGRAINE [Concomitant]
     Indication: MIGRAINE
     Dates: start: 1989
  9. ZYRTEC [Concomitant]
     Dosage: FOR SINUS (NOS)
     Dates: start: 2007
  10. NEXIUM [Concomitant]
     Indication: GASTROOESOPHAGEAL REFLUX DISEASE
     Dates: start: 2007
  11. WELLBUTRIN [Concomitant]
     Indication: DEPRESSION
     Dates: start: 2007
  12. WELLBUTRIN [Concomitant]
     Indication: ANXIETY
  13. OVCON-35 [Concomitant]
     Dosage: OFF AND ON OVER THE YEARS (NOS)
  14. OVCON-35 [Concomitant]
  15. WELLBUTRIN [Concomitant]
     Indication: DEPRESSION
  16. WELLBUTRIN [Concomitant]
     Indication: ANXIETY

REACTIONS (2)
  - Cholecystectomy [Unknown]
  - Cholecystitis chronic [None]
